FAERS Safety Report 14048337 (Version 4)
Quarter: 2018Q2

REPORT INFORMATION
  Report Type: Report from Study
  Country: US (occurrence: US)
  Receive Date: 20171005
  Receipt Date: 20180510
  Transmission Date: 20180711
  Serious: No
  Sender: FDA-Public Use
  Company Number: PHEH2017US031922

PATIENT
  Age: 19 Year
  Sex: Female

DRUGS (1)
  1. AFINITOR [Suspect]
     Active Substance: EVEROLIMUS
     Indication: ASTROCYTOMA, LOW GRADE
     Dosage: 7.5 MG AND 5 MG, QOD
     Route: 048
     Dates: start: 20110613, end: 20180211

REACTIONS (5)
  - Polymenorrhoea [Unknown]
  - Cough [Recovered/Resolved]
  - Influenza [Recovered/Resolved]
  - Pyrexia [Recovering/Resolving]
  - Bacterial test positive [Recovering/Resolving]

NARRATIVE: CASE EVENT DATE: 20180211
